FAERS Safety Report 11885855 (Version 2)
Quarter: 2016Q1

REPORT INFORMATION
  Report Type: Report from Study
  Country: CO (occurrence: CO)
  Receive Date: 20160104
  Receipt Date: 20160125
  Transmission Date: 20160526
  Serious: Yes (Disabling, Other)
  Sender: FDA-Public Use
  Company Number: CO-ABBVIE-15K-036-1530438-00

PATIENT
  Age: 47 Year
  Sex: Male
  Weight: 54 kg

DRUGS (1)
  1. HUMIRA [Suspect]
     Active Substance: ADALIMUMAB
     Indication: COLITIS ULCERATIVE
     Route: 058
     Dates: start: 20150930, end: 20151126

REACTIONS (3)
  - General physical health deterioration [Recovering/Resolving]
  - Diarrhoea haemorrhagic [Recovering/Resolving]
  - Disability [Unknown]

NARRATIVE: CASE EVENT DATE: 2015
